FAERS Safety Report 23073945 (Version 1)
Quarter: 2023Q4

REPORT INFORMATION
  Report Type: Spontaneous
  Country: US (occurrence: None)
  Receive Date: 20231016
  Receipt Date: 20231016
  Transmission Date: 20240109
  Serious: Yes (Death)
  Sender: FDA-Public Use
  Company Number: None

PATIENT
  Sex: Female

DRUGS (2)
  1. PROLIA [Suspect]
     Active Substance: DENOSUMAB
     Indication: Senile osteoporosis
     Dosage: FREQUENCY: EVERY 6 MONTHS
     Route: 058
     Dates: start: 20201027
  2. MAGNESIUM TAB 500MG [Concomitant]

REACTIONS (1)
  - Death [None]
